FAERS Safety Report 5065438-0 (Version None)
Quarter: 2006Q3

REPORT INFORMATION
  Report Type: 
  Country: None (occurrence: None)
  Receive Date: 20060707
  Receipt Date: 20051125
  Transmission Date: 20061208
  Serious: Yes (Other)
  Sender: FDA-Public Use
  Company Number: SUS1-2005-00810

PATIENT
  Age: 15 Year
  Sex: Male

DRUGS (11)
  1. PENTASA [Suspect]
     Indication: COLITIS ULCERATIVE
     Dosage: SEE IMAGE
     Route: 048
     Dates: start: 20040427, end: 20050718
  2. PENTASA [Suspect]
     Indication: COLITIS ULCERATIVE
     Dosage: SEE IMAGE
     Route: 048
     Dates: start: 20050719, end: 20050721
  3. PENTASA [Suspect]
     Indication: COLITIS ULCERATIVE
     Dosage: SEE IMAGE
     Route: 048
     Dates: start: 20050722, end: 20050809
  4. PENTASA [Suspect]
     Indication: COLITIS ULCERATIVE
     Dosage: SEE IMAGE
     Route: 048
     Dates: start: 20050825
  5. PENTASA [Suspect]
     Dosage: 1 G DAILY, RECTAL
     Route: 054
     Dates: start: 20041111
  6. PREDNISOLONE SODIUM PHOSPHATE [Concomitant]
  7. CEFTAZIDINE (CEFTAZIDINE) [Concomitant]
  8. FAMOTIDINE [Concomitant]
  9. TEPRENONE (TEPRENONE) [Concomitant]
  10. CEFMETAZOLE (CEFMETAZOLE) [Concomitant]
  11. AZITHROMYCIN [Concomitant]

REACTIONS (3)
  - HEPATIC FUNCTION ABNORMAL [None]
  - NEPHRITIS INTERSTITIAL [None]
  - PANCREATITIS [None]
